FAERS Safety Report 4292869-9 (Version None)
Quarter: 2004Q1

REPORT INFORMATION
  Report Type: 
  Country: None (occurrence: None)
  Receive Date: 20040212
  Receipt Date: 20030715
  Transmission Date: 20041129
  Serious: No
  Sender: FDA-Public Use
  Company Number: US-GLAXOSMITHKLINE-A0417033A

PATIENT
  Sex: Female

DRUGS (1)
  1. PAXIL [Suspect]
     Dosage: 10MG PER DAY
     Route: 048

REACTIONS (5)
  - CARDIAC FLUTTER [None]
  - DIZZINESS [None]
  - FATIGUE [None]
  - NERVOUSNESS [None]
  - SLEEP DISORDER [None]
